FAERS Safety Report 12371590 (Version 3)
Quarter: 2016Q2

REPORT INFORMATION
  Report Type: Spontaneous
  Country: BR (occurrence: BR)
  Receive Date: 20160516
  Receipt Date: 20160621
  Transmission Date: 20160815
  Serious: Yes (Hospitalization, Other)
  Sender: FDA-Public Use
  Company Number: PHHY2016BR066633

PATIENT
  Sex: Female

DRUGS (1)
  1. FORASEQ [Suspect]
     Active Substance: BUDESONIDE\FORMOTEROL FUMARATE
     Indication: ASTHMA
     Dosage: UNK, PRN (ONLY WHEN SHE HAD ASTHMA EPISODES)
     Route: 055
     Dates: start: 2012

REACTIONS (3)
  - Incorrect dose administered [Unknown]
  - Neoplasm malignant [Unknown]
  - Asthma [Unknown]

NARRATIVE: CASE EVENT DATE: 20160507
